FAERS Safety Report 19048450 (Version 4)
Quarter: 2023Q2

REPORT INFORMATION
  Report Type: Other
  Country: US (occurrence: None)
  Receive Date: 20210323
  Receipt Date: 20230426
  Transmission Date: 20230722
  Serious: Yes (Other)
  Sender: FDA-Public Use
  Company Number: US-ROCHE-2795945

PATIENT
  Age: 57 Year
  Sex: Female
  Weight: 57.204 kg

DRUGS (3)
  1. OCREVUS [Suspect]
     Active Substance: OCRELIZUMAB
     Indication: Relapsing-remitting multiple sclerosis
     Dosage: DATE OF TREATMENT: 05/APR/2018, 05/OCT/2018, 05/APR/2019, 27/SEP/2019, 24/JUL/2020, 26/MAY/2021,  26
     Route: 042
     Dates: start: 20180322, end: 20220126
  2. OCREVUS [Suspect]
     Active Substance: OCRELIZUMAB
     Indication: Relapsing multiple sclerosis
  3. SLYND [Concomitant]
     Active Substance: DROSPIRENONE
     Indication: Contraception
     Route: 048

REACTIONS (3)
  - COVID-19 [Recovered/Resolved]
  - Kidney infection [Recovered/Resolved]
  - Renal pain [Recovered/Resolved]

NARRATIVE: CASE EVENT DATE: 20200301
